FAERS Safety Report 23344823 (Version 1)
Quarter: 2023Q4

REPORT INFORMATION
  Report Type: Spontaneous
  Country: CA (occurrence: CA)
  Receive Date: 20231228
  Receipt Date: 20231228
  Transmission Date: 20240110
  Serious: Yes (Other)
  Sender: FDA-Public Use
  Company Number: CA-MLMSERVICE-20231212-4722180-1

PATIENT
  Age: 65 Year
  Sex: Male

DRUGS (1)
  1. DOCETAXEL [Suspect]
     Active Substance: DOCETAXEL\DOCETAXEL ANHYDROUS
     Indication: Metastatic salivary gland cancer

REACTIONS (3)
  - Pneumonitis [Unknown]
  - Pulmonary toxicity [Unknown]
  - Off label use [Unknown]
